FAERS Safety Report 9425225 (Version 1)
Quarter: 2013Q3

REPORT INFORMATION
  Report Type: Spontaneous
  Country: BR (occurrence: None)
  Receive Date: 20130725
  Receipt Date: 20130725
  Transmission Date: 20140515
  Serious: Yes (Hospitalization)
  Sender: FDA-Public Use
  Company Number: ENTC2013-0258

PATIENT
  Age: 81 Year
  Sex: Female

DRUGS (1)
  1. STAVELO [Suspect]
     Indication: PARKINSON^S DISEASE
     Dosage: ONE MORNING AND ONE NIGHT; STRENGTH 150/37.5/200 MG (2 IN 1 D)?FROM MANY YEARS .
     Dates: start: 2010, end: 20130625

REACTIONS (11)
  - Psychotic disorder [None]
  - Sleep disorder [None]
  - Hypercreatininaemia [None]
  - Creatinine renal clearance decreased [None]
  - Depressed mood [None]
  - Delirium [None]
  - Hallucination, visual [None]
  - Abnormal behaviour [None]
  - Anxiety [None]
  - Asthenia [None]
  - Blood pressure increased [None]
